FAERS Safety Report 18794943 (Version 3)
Quarter: 2021Q1

REPORT INFORMATION
  Report Type: Spontaneous
  Country: US (occurrence: US)
  Receive Date: 20210127
  Receipt Date: 20210212
  Transmission Date: 20210419
  Serious: Yes (Other)
  Sender: FDA-Public Use
  Company Number: US-SA-2021SA025124

PATIENT
  Age: 82 Year
  Sex: Male

DRUGS (2)
  1. TOUJEO [Suspect]
     Active Substance: INSULIN GLARGINE
     Dosage: 13 IU, Q12H(AM AND PM )
     Route: 065
  2. TOUJEO [Suspect]
     Active Substance: INSULIN GLARGINE
     Dosage: 8 IU, Q12H
     Route: 065

REACTIONS (6)
  - Device operational issue [Unknown]
  - Arthritis [Unknown]
  - Peripheral swelling [Unknown]
  - Off label use [Unknown]
  - Dementia [Unknown]
  - Injection site pain [Unknown]

NARRATIVE: CASE EVENT DATE: 20210120
